FAERS Safety Report 5273691-3 (Version None)
Quarter: 2007Q1

REPORT INFORMATION
  Report Type: 
  Country: None (occurrence: None)
  Receive Date: 20070321
  Receipt Date: 20070321
  Transmission Date: 20070707
  Serious: No
  Sender: FDA-Public Use
  Company Number: None

PATIENT
  Age: 63 Year
  Sex: Female

DRUGS (6)
  1. ATENOLOL [Suspect]
     Indication: HYPERTENSION
     Dosage: ONE TABLET BY MOUTH DAILY
     Route: 048
     Dates: start: 20070201
  2. ATENOLOL [Suspect]
     Indication: MITRAL VALVE PROLAPSE
     Dosage: ONE TABLET BY MOUTH DAILY
     Route: 048
     Dates: start: 20070201
  3. COZAAR [Concomitant]
  4. PRILOSEC [Concomitant]
  5. SULFASALAZINE [Concomitant]
  6. MENEST [Concomitant]

REACTIONS (4)
  - BLOOD PRESSURE INCREASED [None]
  - DRUG INEFFECTIVE [None]
  - PHARMACEUTICAL PRODUCT COMPLAINT [None]
  - THERAPEUTIC RESPONSE UNEXPECTED WITH DRUG SUBSTITUTION [None]
